FAERS Safety Report 21407640 (Version 1)
Quarter: 2022Q4

REPORT INFORMATION
  Report Type: Spontaneous
  Country: DE (occurrence: DE)
  Receive Date: 20221004
  Receipt Date: 20221004
  Transmission Date: 20230112
  Serious: Yes (Other)
  Sender: FDA-Public Use
  Company Number: DE-GLAXOSMITHKLINE-DE2022EME139778

PATIENT

DRUGS (1)
  1. BENLYSTA [Suspect]
     Active Substance: BELIMUMAB
     Indication: Product used for unknown indication
     Dosage: UNK

REACTIONS (5)
  - Tubulointerstitial nephritis [Unknown]
  - Double stranded DNA antibody positive [Unknown]
  - Haematuria [Unknown]
  - Blood creatinine increased [Unknown]
  - Drug ineffective [Unknown]
